FAERS Safety Report 10758793 (Version 10)
Quarter: 2015Q4

REPORT INFORMATION
  Report Type: Spontaneous
  Country: US (occurrence: US)
  Receive Date: 20150203
  Receipt Date: 20151210
  Transmission Date: 20160304
  Serious: No
  Sender: FDA-Public Use
  Company Number: US-PFIZER INC-2015038929

PATIENT
  Age: 67 Year
  Sex: Male
  Weight: 81 kg

DRUGS (10)
  1. ZOFRAN [Concomitant]
     Active Substance: ONDANSETRON HYDROCHLORIDE
     Dosage: UNK
     Dates: start: 20140421
  2. NORCO [Concomitant]
     Active Substance: ACETAMINOPHEN\HYDROCODONE BITARTRATE
     Dosage: UNK
     Dates: start: 20150318
  3. SUTENT [Suspect]
     Active Substance: SUNITINIB MALATE
     Indication: RENAL CANCER STAGE IV
     Dosage: 50 MG, CYCLIC, ONCE DAILY (28 DAYS ON AND 14 DAYS OFF)
     Dates: start: 20140506
  4. XGEVA [Concomitant]
     Active Substance: DENOSUMAB
     Dosage: UNK
     Dates: start: 20140424
  5. LOSARTAN POTASSIUM. [Concomitant]
     Active Substance: LOSARTAN POTASSIUM
     Dosage: 25 MG, DAILY
     Route: 048
  6. PROBENECID. [Concomitant]
     Active Substance: PROBENECID
     Dosage: 500 MG, DAILY
     Route: 048
  7. TRILIPIX [Concomitant]
     Active Substance: FENOFIBRIC ACID
     Indication: BLOOD TRIGLYCERIDES INCREASED
     Dosage: UNK
     Dates: start: 20150506
  8. NIFEDICAL XL [Concomitant]
     Active Substance: NIFEDIPINE
     Dosage: 60 MG, DAILY
     Route: 048
  9. SIMVASTATIN. [Concomitant]
     Active Substance: SIMVASTATIN
     Dosage: UNK UNK, DAILY
     Route: 048
  10. ASPIRIN. [Concomitant]
     Active Substance: ASPIRIN
     Dosage: 81 MG, DAILY
     Route: 048

REACTIONS (26)
  - Blood creatinine increased [Unknown]
  - Dysgeusia [Unknown]
  - Abdominal distension [Recovering/Resolving]
  - Dry skin [Unknown]
  - Diarrhoea [Recovering/Resolving]
  - Neuropathy peripheral [Unknown]
  - Prostatomegaly [Unknown]
  - Fatigue [Unknown]
  - White blood cell count decreased [Unknown]
  - Asthenia [Unknown]
  - Skin reaction [Unknown]
  - Thyroid function test abnormal [Unknown]
  - Neutrophil count decreased [Unknown]
  - Renal cancer stage IV [Unknown]
  - Weight increased [Unknown]
  - Lacrimation increased [Unknown]
  - Skin irritation [Unknown]
  - Skin exfoliation [Unknown]
  - Disease progression [Unknown]
  - Gastrointestinal disorder [Recovering/Resolving]
  - Abdominal pain upper [Recovered/Resolved]
  - Palmar-plantar erythrodysaesthesia syndrome [Unknown]
  - Memory impairment [Unknown]
  - Gastritis [Recovering/Resolving]
  - Flatulence [Recovering/Resolving]
  - Decreased appetite [Unknown]

NARRATIVE: CASE EVENT DATE: 201405
